FAERS Safety Report 6477967-3 (Version None)
Quarter: 2009Q4

REPORT INFORMATION
  Report Type: 
  Country: None (occurrence: None)
  Receive Date: 20091207
  Receipt Date: 20091130
  Transmission Date: 20100525
  Serious: Yes (Other)
  Sender: FDA-Public Use
  Company Number: B0549678A

PATIENT
  Age: 30 Year
  Sex: Female

DRUGS (3)
  1. KIVEXA [Suspect]
  2. SERETIDE [Suspect]
     Route: 055
  3. REYATAZ [Suspect]

REACTIONS (1)
  - CUSHING'S SYNDROME [None]
